FAERS Safety Report 25353422 (Version 1)
Quarter: 2025Q2

REPORT INFORMATION
  Report Type: Spontaneous
  Country: US (occurrence: US)
  Receive Date: 20250523
  Receipt Date: 20250523
  Transmission Date: 20250716
  Serious: Yes (Life-Threatening, Hospitalization)
  Sender: DR REDDYS
  Company Number: US-MLMSERVICE-20250502-PI488953-00145-1

PATIENT
  Age: 69 Year
  Sex: Male

DRUGS (5)
  1. FENTANYL [Suspect]
     Active Substance: FENTANYL
     Indication: Product used for unknown indication
  2. MORPHINE [Suspect]
     Active Substance: MORPHINE
     Indication: Product used for unknown indication
  3. KETAMINE [Suspect]
     Active Substance: KETAMINE
     Indication: Product used for unknown indication
  4. DIPHENHYDRAMINE [Suspect]
     Active Substance: DIPHENHYDRAMINE
     Indication: Product used for unknown indication
  5. QUININE [Suspect]
     Active Substance: QUININE
     Indication: Product used for unknown indication

REACTIONS (10)
  - Unresponsive to stimuli [Unknown]
  - Miosis [Unknown]
  - Sinus bradycardia [Recovered/Resolved]
  - Atrioventricular dissociation [Unknown]
  - Diastolic dysfunction [Unknown]
  - Sedation complication [Unknown]
  - Mental status changes [Unknown]
  - Hypoxia [Unknown]
  - Respiration abnormal [Unknown]
  - Overdose [Unknown]
